FAERS Safety Report 22993957 (Version 3)
Quarter: 2023Q4

REPORT INFORMATION
  Report Type: Report from Study
  Country: CO (occurrence: CO)
  Receive Date: 20230927
  Receipt Date: 20231124
  Transmission Date: 20240110
  Serious: Yes (Other)
  Sender: FDA-Public Use
  Company Number: CO-002147023-NVSC2023CO161020

PATIENT
  Sex: Female

DRUGS (4)
  1. COSENTYX [Suspect]
     Active Substance: SECUKINUMAB
     Indication: Psoriatic arthropathy
     Dosage: 300 MG, QMO
     Route: 058
  2. COSENTYX [Suspect]
     Active Substance: SECUKINUMAB
     Dosage: UNK (04 AUG OF UNKNOWN YEAR)
     Route: 065
  3. COSENTYX [Suspect]
     Active Substance: SECUKINUMAB
     Dosage: 300 MG, QW
     Route: 058
  4. METHOTREXATE [Suspect]
     Active Substance: METHOTREXATE
     Indication: Product used for unknown indication
     Dosage: UNK
     Route: 065

REACTIONS (10)
  - Psoriatic arthropathy [Unknown]
  - Condition aggravated [Unknown]
  - Finger deformity [Unknown]
  - Movement disorder [Unknown]
  - Pain [Unknown]
  - Muscle rigidity [Unknown]
  - Inflammation [Unknown]
  - Depression [Unknown]
  - Injection site pain [Unknown]
  - Application site bruise [Unknown]
